FAERS Safety Report 9778094 (Version 1)
Quarter: 2013Q4

REPORT INFORMATION
  Report Type: Spontaneous
  Country: US (occurrence: US)
  Receive Date: 20131223
  Receipt Date: 20131223
  Transmission Date: 20140711
  Serious: Yes (Other)
  Sender: FDA-Public Use
  Company Number: US-JNJFOC-20131210574

PATIENT
  Age: 52 Year
  Sex: Female
  Weight: 72.58 kg

DRUGS (3)
  1. REMICADE [Suspect]
     Indication: PSORIATIC ARTHROPATHY
     Dosage: 400-500 MG, EVERY 6-8 WEEKS
     Route: 042
     Dates: start: 2002, end: 201212
  2. REMICADE [Suspect]
     Indication: RHEUMATOID ARTHRITIS
     Dosage: 400-500 MG, EVERY 6-8 WEEKS
     Route: 042
     Dates: start: 2002, end: 201212
  3. PREDNISONE [Suspect]
     Indication: PRODUCT USED FOR UNKNOWN INDICATION
     Route: 065
     Dates: start: 1991, end: 2002

REACTIONS (2)
  - Uterine cancer [Recovered/Resolved]
  - Weight increased [Recovering/Resolving]
